FAERS Safety Report 5525843-2 (Version None)
Quarter: 2007Q4

REPORT INFORMATION
  Report Type: 
  Country: None (occurrence: None)
  Receive Date: 20071126
  Receipt Date: 20071114
  Transmission Date: 20080405
  Serious: Yes (Other)
  Sender: FDA-Public Use
  Company Number: DE-PFIZER INC-2007083789

PATIENT
  Sex: Female
  Weight: 77 kg

DRUGS (3)
  1. LYRICA [Suspect]
     Indication: SPINAL CORD INJURY
     Dosage: DAILY DOSE:375MG
     Route: 048
  2. PARACETAMOL [Concomitant]
  3. NEURONTIN [Concomitant]
     Route: 048
     Dates: start: 20000301, end: 20050901

REACTIONS (4)
  - C-REACTIVE PROTEIN INCREASED [None]
  - FRACTURE [None]
  - HEPATIC ENZYME INCREASED [None]
  - WEIGHT INCREASED [None]
